FAERS Safety Report 21209098 (Version 1)
Quarter: 2022Q3

REPORT INFORMATION
  Report Type: Spontaneous
  Country: BE (occurrence: BE)
  Receive Date: 20220812
  Receipt Date: 20220812
  Transmission Date: 20221027
  Serious: Yes (Death, Hospitalization, Other)
  Sender: FDA-Public Use
  Company Number: BE-GILEAD-2022-0593331

PATIENT
  Age: 18 Year
  Sex: Male

DRUGS (1)
  1. GENVOYA [Suspect]
     Active Substance: COBICISTAT\ELVITEGRAVIR\EMTRICITABINE\TENOFOVIR ALAFENAMIDE FUMARATE
     Indication: HIV infection
     Dosage: UNK
     Route: 048

REACTIONS (5)
  - Intentional overdose [Fatal]
  - Cardiogenic shock [Unknown]
  - Pulseless electrical activity [Unknown]
  - Metabolic acidosis [Unknown]
  - Transaminases increased [Unknown]
